FAERS Safety Report 4462290-9 (Version None)
Quarter: 2004Q3

REPORT INFORMATION
  Report Type: 
  Country: None (occurrence: None)
  Receive Date: 20040929
  Receipt Date: 20020118
  Transmission Date: 20050211
  Serious: Yes (Other)
  Sender: FDA-Public Use
  Company Number: PHEH2002US00952

PATIENT
  Age: 37 Year
  Sex: Female
  Weight: 84 kg

DRUGS (2)
  1. TEGASEROD VS PLACEBO [Suspect]
     Indication: CONSTIPATION
     Dosage: 2 MG, BID
     Route: 048
     Dates: start: 20011031
  2. BISACODYL [Concomitant]
     Indication: CONSTIPATION

REACTIONS (3)
  - PELVIC PAIN [None]
  - PELVIC PERITONEAL ADHESIONS [None]
  - SURGERY [None]
